FAERS Safety Report 5895669-9 (Version None)
Quarter: 2008Q3

REPORT INFORMATION
  Report Type: 
  Country: None (occurrence: None)
  Receive Date: 20080924
  Receipt Date: 20070815
  Transmission Date: 20090109
  Serious: No
  Sender: FDA-Public Use
  Company Number: US-BAYER-200712724BWH

PATIENT
  Age: 90 Year
  Sex: Female

DRUGS (2)
  1. CIPROFLOXACIN [Suspect]
     Indication: DYSURIA
     Route: 048
  2. CIPROFLOXACIN [Suspect]
     Route: 048

REACTIONS (4)
  - DIZZINESS [None]
  - DYSURIA [None]
  - NAUSEA [None]
  - POLLAKIURIA [None]
